FAERS Safety Report 7088069-X (Version None)
Quarter: 2010Q4

REPORT INFORMATION
  Report Type: 
  Country: None (occurrence: None)
  Receive Date: 20101108
  Receipt Date: 20101103
  Transmission Date: 20110411
  Serious: Yes (Death, Life-Threatening, Hospitalization, Disabling, Other)
  Sender: FDA-Public Use
  Company Number: PHFR2010GB03638

PATIENT
  Sex: Male
  Weight: 76.2 kg

DRUGS (5)
  1. CLOZARIL [Suspect]
     Indication: SCHIZOPHRENIA
     Dosage: UNK
     Route: 048
     Dates: start: 20060608
  2. CLOZARIL [Suspect]
     Dosage: 400 MG, UNK
     Route: 048
  3. PROCYCLIDINE HYDROCHLORIDE 2MG TAB [Concomitant]
     Indication: MANIA
     Dosage: 5 MG, UNK
     Route: 048
     Dates: start: 19830101
  4. DEPAKOTE [Concomitant]
     Indication: MANIA
     Dosage: 500 MG, BID
     Route: 048
  5. QUETIAPINE [Concomitant]
     Indication: MANIA
     Dosage: 100 MG, QD
     Route: 048

REACTIONS (8)
  - FALL [None]
  - HIP SURGERY [None]
  - JOINT INJURY [None]
  - METASTASES TO LYMPH NODES [None]
  - METASTATIC SQUAMOUS CELL CARCINOMA [None]
  - NON-SMALL CELL LUNG CANCER STAGE IV [None]
  - PERICARDIAL EFFUSION MALIGNANT [None]
  - PULMONARY MASS [None]
